FAERS Safety Report 21564861 (Version 1)
Quarter: 2022Q4

REPORT INFORMATION
  Report Type: Spontaneous
  Country: US (occurrence: US)
  Receive Date: 20221108
  Receipt Date: 20221108
  Transmission Date: 20230113
  Serious: No
  Sender: FDA-Public Use
  Company Number: US-ALKEM LABORATORIES LIMITED-US-ALKEM-2022-10758

PATIENT
  Age: 39 Year
  Sex: Male

DRUGS (8)
  1. ERYTHROMYCIN [Suspect]
     Active Substance: ERYTHROMYCIN
     Indication: Intestinal pseudo-obstruction
     Dosage: UNK
     Route: 065
  2. METOCLOPRAMIDE [Suspect]
     Active Substance: METOCLOPRAMIDE
     Indication: Intestinal pseudo-obstruction
     Dosage: UNK
     Route: 065
  3. LINACLOTIDE [Suspect]
     Active Substance: LINACLOTIDE
     Indication: Intestinal pseudo-obstruction
     Dosage: UNK
     Route: 065
  4. PRUCALOPRIDE [Suspect]
     Active Substance: PRUCALOPRIDE
     Indication: Intestinal pseudo-obstruction
     Dosage: UNK
     Route: 065
  5. NEOSTIGMINE [Suspect]
     Active Substance: NEOSTIGMINE
     Indication: Intestinal pseudo-obstruction
     Dosage: UNK
     Route: 065
  6. POLYETHYLENE GLYCOL [Suspect]
     Active Substance: POLYETHYLENE GLYCOL
     Indication: Intestinal pseudo-obstruction
     Dosage: UNK
     Route: 065
  7. DOCUSATE [Suspect]
     Active Substance: DOCUSATE
     Indication: Intestinal pseudo-obstruction
     Dosage: UNK
     Route: 065
  8. SENNA [Suspect]
     Active Substance: SENNA LEAF\SENNOSIDES\SENNOSIDES A AND B
     Indication: Intestinal pseudo-obstruction
     Dosage: UNK
     Route: 065

REACTIONS (1)
  - Drug ineffective [Unknown]
